FAERS Safety Report 6974880-X (Version None)
Quarter: 2010Q3

REPORT INFORMATION
  Report Type: 
  Country: None (occurrence: None)
  Receive Date: 20100909
  Receipt Date: 20081218
  Transmission Date: 20110219
  Serious: No
  Sender: FDA-Public Use
  Company Number: US-WYE-H07371008

PATIENT
  Sex: Female
  Weight: 64.01 kg

DRUGS (4)
  1. PRISTIQ [Suspect]
     Indication: DEPRESSION
     Route: 048
     Dates: start: 20081212, end: 20081215
  2. SYNTHROID [Concomitant]
  3. ATENOLOL [Concomitant]
  4. LASIX [Concomitant]

REACTIONS (5)
  - ANXIETY [None]
  - HEART RATE INCREASED [None]
  - INSOMNIA [None]
  - NERVOUSNESS [None]
  - RESTLESSNESS [None]
